FAERS Safety Report 22191267 (Version 1)
Quarter: 2023Q2

REPORT INFORMATION
  Report Type: Spontaneous
  Country: ES (occurrence: ES)
  Receive Date: 20230410
  Receipt Date: 20230410
  Transmission Date: 20230722
  Serious: Yes (Other)
  Sender: FDA-Public Use
  Company Number: None

PATIENT
  Age: 47 Year
  Sex: Male

DRUGS (1)
  1. DUPIXENT [Suspect]
     Active Substance: DUPILUMAB
     Indication: Dermatitis psoriasiform
     Dosage: 300 MG, QW
     Route: 058
     Dates: start: 20210129, end: 20211125

REACTIONS (5)
  - Visual acuity reduced [Unknown]
  - Punctate keratitis [Not Recovered/Not Resolved]
  - Telangiectasia [Not Recovered/Not Resolved]
  - Blepharitis [Not Recovered/Not Resolved]
  - Product use in unapproved indication [Unknown]

NARRATIVE: CASE EVENT DATE: 20210129
